FAERS Safety Report 8115496 (Version 3)
Quarter: 2014Q1

REPORT INFORMATION
  Report Type: Spontaneous
  Country: US (occurrence: US)
  Receive Date: 20110831
  Receipt Date: 20140325
  Transmission Date: 20141002
  Serious: Yes (Hospitalization, Other)
  Sender: FDA-Public Use
  Company Number: US-BAYER-2011-079356

PATIENT
  Age: 12 Year
  Sex: Female
  Weight: 97.05 kg

DRUGS (17)
  1. YAZ [Suspect]
     Indication: MENORRHAGIA
     Dosage: UNK
     Dates: start: 2009
  2. YASMIN [Suspect]
     Indication: MENORRHAGIA
     Dosage: UNK
     Dates: start: 2009
  3. OCELLA [Suspect]
     Indication: MENORRHAGIA
     Dosage: UNK
     Dates: start: 2008, end: 2011
  4. HYDROXYZINE [Concomitant]
  5. HYDROXYZINE [Concomitant]
     Dosage: 25 MG, UNK
     Dates: start: 20100602
  6. FLOVENT [Concomitant]
  7. VENTOLIN [Concomitant]
  8. ZOLOFT [Concomitant]
  9. POLYETHYL. GLYC. W/POTAS. CHLOR./SOD. BICARB. [Concomitant]
  10. CLARITHROMYCIN [Concomitant]
     Dosage: 250 MG/5ML
     Dates: start: 20100529
  11. NITROFURANTOIN [Concomitant]
     Dosage: 50 MG, UNK
     Dates: start: 20100531
  12. ONDANSETRON [Concomitant]
     Dosage: 8 MG, UNK
     Dates: start: 20100531
  13. CETIRIZINE [Concomitant]
     Dosage: 10 MG, UNK
     Dates: start: 20100602
  14. NASONEX [Concomitant]
     Dosage: 50 MCG
     Dates: start: 20100602
  15. NEXIUM [Concomitant]
     Dosage: 20 MG, UNK
     Dates: start: 20100602
  16. HYDROCODONE [Concomitant]
     Dosage: 5MG/325 MG
     Dates: start: 20100608
  17. PROMETHEGAN [Concomitant]
     Dosage: 25 MG, UNK
     Dates: start: 20100608

REACTIONS (3)
  - Cholecystectomy [None]
  - Off label use [None]
  - Cholelithiasis [None]
